FAERS Safety Report 26004959 (Version 2)
Quarter: 2025Q4

REPORT INFORMATION
  Report Type: Spontaneous
  Country: EU (occurrence: EU)
  Receive Date: 20251106
  Receipt Date: 20251127
  Transmission Date: 20260117
  Serious: Yes (Other)
  Sender: SANOFI AVENTIS
  Company Number: EU-SA-2025SA326746

PATIENT
  Age: 45 Year
  Sex: Male

DRUGS (6)
  1. DUPIXENT [Suspect]
     Active Substance: DUPILUMAB
     Indication: Dermatitis atopic
     Dosage: UNK
     Route: 065
     Dates: start: 2023
  2. PIPERACILLIN AND TAZOBACTAM [Concomitant]
     Active Substance: PIPERACILLIN SODIUM\TAZOBACTAM SODIUM
     Dosage: UNK
     Route: 065
     Dates: start: 20251026
  3. MEROPENEM [Concomitant]
     Active Substance: MEROPENEM
     Dosage: 3 X 1 G IV
     Route: 042
     Dates: start: 20251026, end: 2025
  4. VANCOMYCIN [Concomitant]
     Active Substance: VANCOMYCIN
     Dosage: 2 X 1 G IV
     Route: 042
     Dates: start: 20251026, end: 2025
  5. CLINDAMYCIN [Concomitant]
     Active Substance: CLINDAMYCIN
     Dosage: 3 X 600 MG IV
     Route: 042
     Dates: start: 20251026
  6. ANIDULAFUNGIN [Concomitant]
     Active Substance: ANIDULAFUNGIN
     Dosage: UNK
     Route: 042
     Dates: start: 20251026, end: 2025

REACTIONS (10)
  - Immunodeficiency [Unknown]
  - Systemic bacterial infection [Unknown]
  - Staphylococcal bacteraemia [Unknown]
  - Spinal cord abscess [Unknown]
  - Lung abscess [Unknown]
  - Pericardial effusion [Unknown]
  - Influenza like illness [Unknown]
  - Pyrexia [Unknown]
  - Cough [Unknown]
  - Dyspnoea [Recovered/Resolved]

NARRATIVE: CASE EVENT DATE: 20251001
